FAERS Safety Report 16210364 (Version 1)
Quarter: 2019Q2

REPORT INFORMATION
  Report Type: Spontaneous
  Country: US (occurrence: US)
  Receive Date: 20190313
  Receipt Date: 20190313
  Transmission Date: 20190711
  Serious: Yes (Hospitalization)
  Sender: FDA-Public Use
  Company Number: None

PATIENT
  Age: 70 Year
  Sex: Male
  Weight: 78.38 kg

DRUGS (1)
  1. WARFARIN [Suspect]
     Active Substance: WARFARIN
     Indication: ATRIAL FIBRILLATION
     Dates: start: 20160810, end: 20190117

REACTIONS (6)
  - Pleural effusion [None]
  - Pulmonary embolism [None]
  - Cyanosis [None]
  - International normalised ratio abnormal [None]
  - Dyspnoea [None]
  - Left ventricular failure [None]

NARRATIVE: CASE EVENT DATE: 20190117
